FAERS Safety Report 5748205-1 (Version None)
Quarter: 2008Q2

REPORT INFORMATION
  Report Type: 
  Country: None (occurrence: None)
  Receive Date: 20080523
  Receipt Date: 20080516
  Transmission Date: 20081010
  Serious: Yes (Other)
  Sender: FDA-Public Use
  Company Number: ES-PFIZER INC-2008043018

PATIENT
  Sex: Male
  Weight: 62 kg

DRUGS (9)
  1. MARAVIROC [Suspect]
     Indication: HIV INFECTION
     Route: 048
  2. RITONAVIR [Suspect]
     Indication: HIV INFECTION
     Route: 048
     Dates: start: 20080218, end: 20080424
  3. RALTEGRAVIR [Suspect]
     Indication: HIV INFECTION
     Route: 048
     Dates: start: 20080218
  4. DARUNAVIR [Suspect]
     Indication: HIV INFECTION
     Route: 048
     Dates: start: 20080218
  5. CLONAZEPAM [Concomitant]
     Route: 048
     Dates: start: 19970404
  6. GABAPENTIN [Concomitant]
     Route: 048
     Dates: start: 19970521
  7. MST [Concomitant]
     Route: 048
     Dates: start: 19970716
  8. FOLINIC ACID [Concomitant]
     Route: 048
     Dates: start: 19971029
  9. OMEPRAZOLE [Concomitant]
     Route: 048
     Dates: start: 20020530

REACTIONS (1)
  - HEPATIC FAILURE [None]
